FAERS Safety Report 5371610-2 (Version None)
Quarter: 2007Q2

REPORT INFORMATION
  Report Type: 
  Country: None (occurrence: None)
  Receive Date: 20070615
  Receipt Date: 20060620
  Transmission Date: 20071010
  Serious: Yes (Other)
  Sender: FDA-Public Use
  Company Number: 200612265US

PATIENT
  Age: 44 Year
  Sex: Female
  Weight: 63.86 kg

DRUGS (6)
  1. LANTUS [Suspect]
     Indication: DIABETES MELLITUS INSULIN-DEPENDENT
     Dosage: 12 U QD INJ
     Dates: start: 20040801, end: 20060101
  2. LANTUS [Suspect]
     Indication: DIABETES MELLITUS INSULIN-DEPENDENT
     Dosage: 14 U QD INJ
     Dates: start: 20060101, end: 20060117
  3. FLUTICASONE PROPIONATE, SALMETEROL XINAFOATE (ADVAIR) [Concomitant]
  4. SALBUTAMOL [Concomitant]
  5. FLUTICASONE PROPIONATE (FLONASE) [Concomitant]
  6. INSULIN HUMAN, INSULIN HUMAN INJECTION, ISOPHANE (NPH INSULIN) [Concomitant]

REACTIONS (1)
  - DIABETIC RETINOPATHY [None]
